FAERS Safety Report 9246751 (Version 1)
Quarter: 2013Q2

REPORT INFORMATION
  Report Type: Spontaneous
  Country: US (occurrence: US)
  Receive Date: 20130422
  Receipt Date: 20130422
  Transmission Date: 20140414
  Serious: Yes (Other)
  Sender: FDA-Public Use
  Company Number: US-FRI-1000044558

PATIENT
  Age: 47 Year
  Sex: Female

DRUGS (29)
  1. VIIBRYD [Suspect]
     Indication: DEPRESSION
     Dosage: 10 MG
     Route: 048
     Dates: start: 2012, end: 2012
  2. VIIBRYD [Suspect]
     Dosage: 20 MG
     Route: 048
     Dates: start: 2012, end: 2012
  3. VIIBRYD [Suspect]
     Dosage: 40 MG
     Route: 048
     Dates: start: 2012
  4. NOVOLOG [Suspect]
     Indication: DIABETES MELLITUS
  5. LAMICTAL [Suspect]
     Indication: DEPRESSION
     Dosage: 200 MG
     Route: 048
  6. LEVEMIR [Concomitant]
     Indication: DIABETES MELLITUS
     Dosage: 90 UNITS
     Route: 058
  7. GABAPENTIN [Concomitant]
     Indication: NEUROPATHY PERIPHERAL
  8. TEGRETOL [Concomitant]
     Indication: NEUROPATHY PERIPHERAL
  9. ENALAPRIL [Concomitant]
  10. DIAMOX [Concomitant]
     Indication: MIGRAINE
  11. BOTOX [Concomitant]
     Indication: MIGRAINE
  12. ASPIRIN [Concomitant]
  13. JANUVIA [Concomitant]
     Indication: DIABETES MELLITUS
  14. METFORMIN [Concomitant]
     Indication: DIABETES MELLITUS
  15. SIMVASTATIN [Concomitant]
     Indication: BLOOD CHOLESTEROL INCREASED
  16. TRICOR [Concomitant]
     Indication: BLOOD CHOLESTEROL INCREASED
  17. ZETIA [Concomitant]
     Indication: BLOOD CHOLESTEROL INCREASED
  18. RITALIN [Concomitant]
     Indication: SLEEP DISORDER
  19. PROVIGIL [Concomitant]
     Indication: SOMNOLENCE
  20. TOPAMAX [Concomitant]
  21. WELLBUTRIN [Concomitant]
  22. SPIRONOLACTONE [Concomitant]
  23. BUMEX [Concomitant]
     Indication: OEDEMA PERIPHERAL
  24. ASMANEX [Concomitant]
  25. PROAIR HFA [Concomitant]
  26. FLEXERIL [Concomitant]
     Indication: BACK PAIN
  27. NEXIUM [Concomitant]
  28. NAMENDA [Concomitant]
     Indication: MEMORY IMPAIRMENT
  29. RAZADYNE [Concomitant]
     Indication: MEMORY IMPAIRMENT

REACTIONS (3)
  - Accidental overdose [Recovered/Resolved]
  - Hypoglycaemia [Recovered/Resolved]
  - Confusional state [Not Recovered/Not Resolved]
